FAERS Safety Report 4942347-6 (Version None)
Quarter: 2006Q1

REPORT INFORMATION
  Report Type: 
  Country: None (occurrence: None)
  Receive Date: 20060313
  Receipt Date: 20060104
  Transmission Date: 20060701
  Serious: No
  Sender: FDA-Public Use
  Company Number: US-GLAXOSMITHKLINE-A0587661A

PATIENT
  Age: 55 Year
  Sex: Female

DRUGS (1)
  1. NICORETTE (MINT) [Suspect]
     Dates: end: 20051231

REACTIONS (5)
  - CHEILITIS [None]
  - GLOSSITIS [None]
  - HYPOVENTILATION [None]
  - PALPITATIONS [None]
  - SWOLLEN TONGUE [None]
